FAERS Safety Report 21993195 (Version 1)
Quarter: 2023Q1

REPORT INFORMATION
  Report Type: Spontaneous
  Country: US (occurrence: US)
  Receive Date: 20230215
  Receipt Date: 20230215
  Transmission Date: 20230417
  Serious: No
  Sender: FDA-Public Use
  Company Number: US-ELI_LILLY_AND_COMPANY-US202302005357

PATIENT
  Age: 40 Year
  Sex: Female

DRUGS (1)
  1. MOUNJARO [Suspect]
     Active Substance: TIRZEPATIDE
     Indication: Obesity
     Dosage: UNK UNK, UNKNOWN
     Route: 065

REACTIONS (3)
  - Food craving [Unknown]
  - Weight increased [Unknown]
  - Off label use [Unknown]
